FAERS Safety Report 12931707 (Version 1)
Quarter: 2016Q4

REPORT INFORMATION
  Report Type: Report from Study
  Country: None (occurrence: FI)
  Receive Date: 20161110
  Receipt Date: 20161110
  Transmission Date: 20170207
  Serious: Yes (Hospitalization, Disabling, Other)
  Sender: FDA-Public Use
  Company Number: FI-ABBVIE-15P-055-1521280-00

PATIENT
  Age: 65 Year
  Sex: Male

DRUGS (4)
  1. DUODOPA [Suspect]
     Active Substance: CARBIDOPA\LEVODOPA
     Route: 050
     Dates: start: 20150907, end: 20151211
  2. DUODOPA [Suspect]
     Active Substance: CARBIDOPA\LEVODOPA
     Indication: PARKINSON^S DISEASE
     Route: 050
     Dates: start: 20150901, end: 20150907
  3. INLYTA [Concomitant]
     Active Substance: AXITINIB
     Indication: PRODUCT USED FOR UNKNOWN INDICATION
     Dates: start: 20151117, end: 20160608
  4. VOTRIENT [Concomitant]
     Active Substance: PAZOPANIB HYDROCHLORIDE
     Indication: PRODUCT USED FOR UNKNOWN INDICATION
     Dates: start: 20120918, end: 20151117

REACTIONS (7)
  - Demyelination [Unknown]
  - Peripheral sensory neuropathy [Unknown]
  - Hypoaesthesia [Not Recovered/Not Resolved]
  - Polyneuropathy [Not Recovered/Not Resolved]
  - Vitamin B6 decreased [Unknown]
  - Balance disorder [Not Recovered/Not Resolved]
  - Blood homocysteine increased [Unknown]

NARRATIVE: CASE EVENT DATE: 201511
